FAERS Safety Report 5149278-X (Version None)
Quarter: 2006Q4

REPORT INFORMATION
  Report Type: 
  Country: None (occurrence: None)
  Receive Date: 20061113
  Receipt Date: 20061013
  Transmission Date: 20070319
  Serious: Yes (Hospitalization)
  Sender: FDA-Public Use
  Company Number: JP-JPN-A200604200

PATIENT
  Age: 72 Year
  Sex: Male
  Weight: 65 kg

DRUGS (5)
  1. ZOVIRAX [Suspect]
     Indication: HERPES SIMPLEX
     Dosage: 250MG PER DAY
     Route: 042
     Dates: start: 20061002
  2. VALTREX [Suspect]
     Indication: HERPES SIMPLEX
     Dosage: 1000G THREE TIMES PER DAY
     Route: 048
     Dates: start: 20061002, end: 20061008
  3. MEIACT [Suspect]
     Indication: BACTERIAL INFECTION
     Dosage: 100MG THREE TIMES PER DAY
     Route: 048
     Dates: start: 20061001, end: 20061008
  4. LOXONIN [Concomitant]
     Route: 048
  5. SELBEX [Concomitant]
     Route: 048

REACTIONS (4)
  - BLOOD CREATININE INCREASED [None]
  - BLOOD UREA INCREASED [None]
  - OVERDOSE [None]
  - RENAL FAILURE ACUTE [None]
